FAERS Safety Report 7105125-8 (Version None)
Quarter: 2010Q4

REPORT INFORMATION
  Report Type: 
  Country: None (occurrence: None)
  Receive Date: 20101116
  Receipt Date: 20101104
  Transmission Date: 20110411
  Serious: Yes (Other)
  Sender: FDA-Public Use
  Company Number: US-ELI_LILLY_AND_COMPANY-US201011002216

PATIENT
  Age: 50 Year
  Sex: Male
  Weight: 106.58 kg

DRUGS (4)
  1. EFFIENT [Suspect]
     Indication: STENT PLACEMENT
     Dosage: 10 MG, DAILY (1/D)
     Route: 065
     Dates: start: 20100125, end: 20101103
  2. ASPIRIN [Concomitant]
     Dosage: 325 MG, UNKNOWN
     Route: 065
  3. COZAAR [Concomitant]
     Dosage: 50 MG, UNKNOWN
     Route: 065
  4. METOPROLOL [Concomitant]
     Dosage: 25 MG, 2/D
     Route: 065

REACTIONS (10)
  - CHEST INJURY [None]
  - CONTUSION [None]
  - COUGH [None]
  - DYSURIA [None]
  - FEAR [None]
  - HAEMATOMA [None]
  - HAEMORRHAGE [None]
  - NASOPHARYNGITIS [None]
  - PAIN [None]
  - SNEEZING [None]
